FAERS Safety Report 18425745 (Version 1)
Quarter: 2020Q4

REPORT INFORMATION
  Report Type: Spontaneous
  Country: US (occurrence: US)
  Receive Date: 20201023
  Receipt Date: 20201023
  Transmission Date: 20210114
  Serious: Yes (Other)
  Sender: FDA-Public Use
  Company Number: None

PATIENT
  Sex: Female

DRUGS (1)
  1. IMBRUVICA [Suspect]
     Active Substance: IBRUTINIB
     Dates: end: 20201023

REACTIONS (6)
  - Skin lesion [None]
  - Skin mass [None]
  - Sleep disorder [None]
  - Erythema [None]
  - Anxiety [None]
  - Nodule [None]
